FAERS Safety Report 5988591-0 (Version None)
Quarter: 2008Q4

REPORT INFORMATION
  Report Type: 
  Country: None (occurrence: None)
  Receive Date: 20081208
  Receipt Date: 20081208
  Transmission Date: 20090506
  Serious: Yes (Other)
  Sender: FDA-Public Use
  Company Number: None

PATIENT
  Sex: Female
  Weight: 68.0396 kg

DRUGS (1)
  1. ZOLPIDEM TARTRATE [Suspect]
     Indication: INSOMNIA
     Dosage: 10 MG ONCE BEFORE BED PO
     Route: 048
     Dates: start: 20071201, end: 20081205

REACTIONS (6)
  - DRUG EFFECT DECREASED [None]
  - INSOMNIA [None]
  - MIDDLE INSOMNIA [None]
  - QUALITY OF LIFE DECREASED [None]
  - SLEEP DISORDER [None]
  - THERAPEUTIC RESPONSE UNEXPECTED WITH DRUG SUBSTITUTION [None]
